FAERS Safety Report 20188875 (Version 1)
Quarter: 2021Q4

REPORT INFORMATION
  Report Type: Spontaneous
  Country: FR (occurrence: FR)
  Receive Date: 20211215
  Receipt Date: 20211215
  Transmission Date: 20220303
  Serious: Yes (Hospitalization)
  Sender: FDA-Public Use
  Company Number: None

PATIENT
  Age: 65 Year
  Sex: Male
  Weight: 58 kg

DRUGS (1)
  1. KEYTRUDA [Suspect]
     Active Substance: PEMBROLIZUMAB
     Indication: Basal cell carcinoma
     Dosage: 200 MILLIGRAM, Q3W
     Route: 042
     Dates: start: 20210512, end: 20210825

REACTIONS (3)
  - Hepatitis [Recovering/Resolving]
  - Pancytopenia [Recovering/Resolving]
  - Lymphocytic hypophysitis [Recovering/Resolving]

NARRATIVE: CASE EVENT DATE: 20210906
